FAERS Safety Report 5440960-3 (Version None)
Quarter: 2007Q3

REPORT INFORMATION
  Report Type: 
  Country: None (occurrence: None)
  Receive Date: 20070831
  Receipt Date: 20070821
  Transmission Date: 20080115
  Serious: Yes (Hospitalization, Other)
  Sender: FDA-Public Use
  Company Number: FR-PFIZER INC-2007048444

PATIENT
  Sex: Female
  Weight: 70 kg

DRUGS (7)
  1. ZYVOX [Interacting]
     Indication: SEPSIS
     Dosage: DAILY DOSE:1200MG
     Route: 042
     Dates: start: 20070602, end: 20070606
  2. ZYVOX [Interacting]
     Indication: STAPHYLOCOCCAL INFECTION
  3. PAROXETINE HCL [Interacting]
     Indication: DEPRESSION
     Route: 048
     Dates: start: 20050101, end: 20070606
  4. TRAMADOL HYDROCHLORIDE AND ACETAMINOPHEN [Interacting]
     Indication: BACK PAIN
     Route: 048
  5. LASIX [Suspect]
     Indication: PULMONARY OEDEMA
     Route: 048
  6. LOXEN [Suspect]
     Indication: HYPERTENSION
     Route: 048
  7. VANCOMYCIN HYDROCHLORIDE [Concomitant]

REACTIONS (11)
  - COMA [None]
  - CONVULSION [None]
  - DRUG INTERACTION [None]
  - FALL [None]
  - HAEMODYNAMIC INSTABILITY [None]
  - HYPERTENSION [None]
  - MULTI-ORGAN FAILURE [None]
  - PNEUMONIA [None]
  - RENAL FAILURE [None]
  - RESPIRATORY DISTRESS [None]
  - STAPHYLOCOCCAL SEPSIS [None]
